FAERS Safety Report 12534749 (Version 1)
Quarter: 2016Q3

REPORT INFORMATION
  Report Type: Other
  Country: US (occurrence: BR)
  Receive Date: 20160706
  Receipt Date: 20160706
  Transmission Date: 20161109
  Serious: Yes (Hospitalization, Disabling)
  Sender: FDA-Public Use
  Company Number: BR-BRECKENRIDGE PHARMACEUTICAL, INC.-1054749

PATIENT
  Age: 67 Year
  Sex: Male

DRUGS (1)
  1. TERBINAFINE. [Suspect]
     Active Substance: TERBINAFINE
     Indication: TINEA CRURIS

REACTIONS (1)
  - Erythrodermic psoriasis [Recovered/Resolved]
